FAERS Safety Report 19873125 (Version 1)
Quarter: 2021Q3

REPORT INFORMATION
  Report Type: Other
  Country: CA (occurrence: CA)
  Receive Date: 20210923
  Receipt Date: 20210923
  Transmission Date: 20211014
  Serious: Yes (Other)
  Sender: FDA-Public Use
  Company Number: CA-ROCHE-1868042

PATIENT
  Sex: Female

DRUGS (2)
  1. LUCENTIS [Suspect]
     Active Substance: RANIBIZUMAB
     Indication: CHOROIDAL NEOVASCULARISATION
     Dosage: UNK
     Route: 065
     Dates: start: 20161202
  2. LUCENTIS [Suspect]
     Active Substance: RANIBIZUMAB
     Indication: NEOVASCULAR AGE-RELATED MACULAR DEGENERATION
     Dosage: UNK
     Route: 031
     Dates: start: 20210913

REACTIONS (8)
  - Disease progression [Unknown]
  - Vitreous detachment [Unknown]
  - Vision blurred [Unknown]
  - Eye irritation [Unknown]
  - Visual impairment [Unknown]
  - Metamorphopsia [Unknown]
  - Neovascular age-related macular degeneration [Unknown]
  - Dry eye [Unknown]
